FAERS Safety Report 11181644 (Version 2)
Quarter: 2017Q1

REPORT INFORMATION
  Report Type: Spontaneous
  Country: US (occurrence: US)
  Receive Date: 20150611
  Receipt Date: 20170308
  Transmission Date: 20170428
  Serious: Yes (Other)
  Sender: FDA-Public Use
  Company Number: US-ASTELLAS-2015US014102

PATIENT
  Sex: Male

DRUGS (1)
  1. XTANDI [Suspect]
     Active Substance: ENZALUTAMIDE
     Indication: HORMONE-REFRACTORY PROSTATE CANCER
     Route: 048
     Dates: start: 201504

REACTIONS (7)
  - Diarrhoea [Unknown]
  - Spinal operation [Unknown]
  - Abasia [Unknown]
  - Pyrexia [Unknown]
  - Fall [Unknown]
  - Pelvic fracture [Unknown]
  - Blood pressure increased [Unknown]
